FAERS Safety Report 10154119 (Version 1)
Quarter: 2014Q2

REPORT INFORMATION
  Report Type: Spontaneous
  Country: CA (occurrence: None)
  Receive Date: 20140502
  Receipt Date: 20140502
  Transmission Date: 20141212
  Serious: Yes (Other)
  Sender: FDA-Public Use
  Company Number: INT_00375_2014

PATIENT
  Age: 60 Year
  Sex: Female

DRUGS (4)
  1. CISPLATIN (CISPLATIN) [Suspect]
     Indication: RECTOSIGMOID CANCER
     Dosage: 100MG/M2 DAY 1 (THIRD CYCLE) INTRAVENOUS (NOT OTHERWISE SPECIFIED)
     Route: 042
  2. OXALIPLATIN [Concomitant]
  3. 5 FLUOROURACIL [Concomitant]
  4. FOLINIC ACID [Concomitant]

REACTIONS (3)
  - Musculoskeletal pain [None]
  - Intermittent claudication [None]
  - Aortic thrombosis [None]
